FAERS Safety Report 23669644 (Version 2)
Quarter: 2024Q2

REPORT INFORMATION
  Report Type: Spontaneous
  Country: HR (occurrence: HR)
  Receive Date: 20240325
  Receipt Date: 20240522
  Transmission Date: 20240715
  Serious: Yes (Other)
  Sender: FDA-Public Use
  Company Number: HR-002147023-NVSC2024HR060075

PATIENT
  Age: 68 Year
  Sex: Male

DRUGS (6)
  1. BROLUCIZUMAB [Suspect]
     Active Substance: BROLUCIZUMAB
     Indication: Neovascular age-related macular degeneration
     Dosage: UNK, (DOSE: 3./3)
     Route: 031
     Dates: start: 20230328
  2. BROLUCIZUMAB [Suspect]
     Active Substance: BROLUCIZUMAB
     Dosage: UNK
     Route: 031
     Dates: start: 20230425
  3. BROLUCIZUMAB [Suspect]
     Active Substance: BROLUCIZUMAB
     Dosage: UNK
     Route: 031
     Dates: start: 20230529
  4. BROLUCIZUMAB [Suspect]
     Active Substance: BROLUCIZUMAB
     Dosage: UNK
     Route: 031
     Dates: start: 20231027
  5. BROLUCIZUMAB [Suspect]
     Active Substance: BROLUCIZUMAB
     Dosage: UNK
     Route: 031
     Dates: start: 20231219
  6. BROLUCIZUMAB [Suspect]
     Active Substance: BROLUCIZUMAB
     Dosage: UNK
     Route: 031
     Dates: start: 20240202

REACTIONS (3)
  - Subretinal fibrosis [Unknown]
  - Retinal scar [Unknown]
  - Lens disorder [Unknown]

NARRATIVE: CASE EVENT DATE: 20230726
